FAERS Safety Report 4709749-4 (Version None)
Quarter: 2005Q3

REPORT INFORMATION
  Report Type: 
  Country: None (occurrence: None)
  Receive Date: 20050707
  Receipt Date: 20050616
  Transmission Date: 20060218
  Serious: Yes (Other)
  Sender: FDA-Public Use
  Company Number: US_0409105476

PATIENT
  Age: 71 Year
  Sex: Female
  Weight: 72.5755 kg

DRUGS (2)
  1. HUMULIN R [Suspect]
     Indication: DIABETES MELLITUS
     Dosage: 22 U DAY
     Dates: start: 19850101
  2. HUMULIN N [Suspect]
     Indication: DIABETES MELLITUS
     Dosage: 23 U DAY
     Dates: start: 19940101

REACTIONS (6)
  - ASTHENIA [None]
  - BLOOD GLUCOSE INCREASED [None]
  - CEREBROVASCULAR ACCIDENT [None]
  - CHILLS [None]
  - DIFFICULTY IN WALKING [None]
  - POOR QUALITY DRUG ADMINISTERED [None]
